FAERS Safety Report 4350307-1 (Version None)
Quarter: 2004Q2

REPORT INFORMATION
  Report Type: 
  Country: None (occurrence: None)
  Receive Date: 20040429
  Receipt Date: 20040419
  Transmission Date: 20050107
  Serious: Yes (Death, Hospitalization)
  Sender: FDA-Public Use
  Company Number: NO-MERCK-0404NOR00006

PATIENT
  Age: 84 Year
  Sex: Female

DRUGS (3)
  1. ACETAMINOPHEN [Concomitant]
     Route: 048
  2. ASPIRIN AND MAGNESIUM OXIDE [Suspect]
     Indication: TRANSIENT ISCHAEMIC ATTACK
     Route: 048
  3. VIOXX [Suspect]
     Indication: OSTEOARTHRITIS
     Route: 048

REACTIONS (2)
  - MULTI-ORGAN FAILURE [None]
  - PEPTIC ULCER PERFORATION [None]
